FAERS Safety Report 8765270 (Version 1)
Quarter: 2012Q4

REPORT INFORMATION
  Report Type: 
  Country: US (occurrence: US)
  Receive Date: 20120831
  Receipt Date: 20120831
  Transmission Date: 20130627
  Serious: No
  Sender: FDA-Public Use
  Company Number: US-B.I. PHARMACEUTICALS,INC./RIDGEFIELD-2012-BP-21038BP

PATIENT
  Sex: Female

DRUGS (25)
  1. TRADJENTA [Suspect]
     Indication: TYPE 2 DIABETES MELLITUS
     Dosage: 5 mg
     Route: 048
  2. BISOPROLOL/HYDROCHLOROTHIAZIDE [Concomitant]
     Route: 048
  3. CRANBERRY EXTRACT [Concomitant]
     Route: 048
  4. CYMBALTA [Concomitant]
     Route: 048
  5. CYMBALTA [Concomitant]
     Route: 048
  6. FUROSEMIDE [Concomitant]
     Route: 048
  7. ONDANSETRON [Concomitant]
     Route: 048
  8. PANTOPRAZOLE [Concomitant]
     Route: 048
  9. CITRACAL [Concomitant]
     Route: 048
  10. HUMIRA [Concomitant]
     Route: 058
  11. MORPHINE SULFATE CONTROLLED RELEASE [Concomitant]
     Route: 048
  12. ADVAIR DISKUS [Concomitant]
     Route: 055
  13. NITROSTAT SUBLINGUAL [Concomitant]
  14. VITAMIN D [Concomitant]
     Route: 048
  15. NYSTATIN [Concomitant]
     Route: 048
  16. OXYCODONE [Concomitant]
     Route: 048
  17. PREDNISONE [Concomitant]
     Route: 048
  18. PREDNISONE [Concomitant]
     Dosage: Strength: 10 mg;
     Route: 048
  19. VENTOLIN HFA [Concomitant]
     Route: 055
  20. LIDODERM [Concomitant]
     Route: 061
  21. OMEGA-3 [Concomitant]
     Route: 048
  22. PIOGLITAZONE [Concomitant]
     Route: 048
  23. TYLENOL [Concomitant]
     Route: 048
  24. ZOLPIDEM [Concomitant]
     Route: 048
  25. MULTIVITAMIN [Concomitant]
     Route: 048

REACTIONS (2)
  - Swelling [Recovered/Resolved]
  - Abdominal pain [Recovered/Resolved]
